FAERS Safety Report 5722706-4 (Version None)
Quarter: 2008Q2

REPORT INFORMATION
  Report Type: 
  Country: None (occurrence: None)
  Receive Date: 20080429
  Receipt Date: 20070716
  Transmission Date: 20081010
  Serious: No
  Sender: FDA-Public Use
  Company Number: US-ASTRAZENECA-2007UW16831

PATIENT
  Age: 84 Year
  Sex: Female

DRUGS (7)
  1. NEXIUM [Suspect]
     Indication: GASTRITIS EROSIVE
     Route: 048
     Dates: start: 20070701
  2. AMITRIPTYLINE HCL [Concomitant]
  3. CHORADIXAPRIDE [Concomitant]
  4. DICYCLOMINE [Concomitant]
  5. OXYBUTRINE [Concomitant]
  6. VITAMIN B-12 [Concomitant]
  7. ENTERIC ASA [Concomitant]

REACTIONS (3)
  - PALPITATIONS [None]
  - PANIC ATTACK [None]
  - RESTLESS LEGS SYNDROME [None]
